FAERS Safety Report 16400553 (Version 3)
Quarter: 2019Q4

REPORT INFORMATION
  Report Type: Spontaneous
  Country: US (occurrence: US)
  Receive Date: 20190606
  Receipt Date: 20191231
  Transmission Date: 20200122
  Serious: Yes (Hospitalization, Other)
  Sender: FDA-Public Use
  Company Number: US-CATALYST PHARMACEUTICALS, INC-2019CAT00172

PATIENT
  Age: 63 Year
  Sex: Female
  Weight: 87.53 kg

DRUGS (19)
  1. MESTINON [Concomitant]
     Active Substance: PYRIDOSTIGMINE BROMIDE
     Dosage: 60 MG, 4X/DAY
  2. POTASSIUM [Concomitant]
     Active Substance: POTASSIUM
  3. ^DIAZOLINE^ [Concomitant]
  4. IRON SUPPLEMENT [Concomitant]
     Active Substance: IRON
  5. CALCIUM AND VITAMIN D [Concomitant]
     Active Substance: CALCIUM\VITAMIN D
  6. FISH OIL [Concomitant]
     Active Substance: FISH OIL
  7. CRANBERRY. [Concomitant]
     Active Substance: CRANBERRY
  8. VITAMIN C [Concomitant]
     Active Substance: ASCORBIC ACID
  9. FIRDAPSE [Suspect]
     Active Substance: AMIFAMPRIDINE
     Dosage: 20 MG, 4X/DAY
     Route: 048
     Dates: start: 2019, end: 201911
  10. PREDNISONE. [Suspect]
     Active Substance: PREDNISONE
     Dosage: UNK
     Dates: start: 2011
  11. VITAMIN B12 [Concomitant]
     Active Substance: CYANOCOBALAMIN
  12. PREDNISONE. [Suspect]
     Active Substance: PREDNISONE
     Dosage: 5 MG, 1X/DAY
  13. MESTINON [Concomitant]
     Active Substance: PYRIDOSTIGMINE BROMIDE
     Dosage: 60 MG, EVERY 4 HOURS WHILE AWAKE
  14. DYAZIDE [Concomitant]
     Active Substance: HYDROCHLOROTHIAZIDE\TRIAMTERENE
  15. MAGNESIUM [Concomitant]
     Active Substance: MAGNESIUM
  16. FIRDAPSE [Suspect]
     Active Substance: AMIFAMPRIDINE
     Indication: MYASTHENIC SYNDROME
     Dosage: 20 MG, EVERY 4 HOURS WHILE AWAKE
     Route: 048
     Dates: start: 2019, end: 2019
  17. FIRDAPSE [Suspect]
     Active Substance: AMIFAMPRIDINE
     Dosage: 20 MG, 4X/DAY
     Route: 048
     Dates: start: 201911
  18. MULTIVITAMIN [Concomitant]
     Active Substance: VITAMINS
  19. SYNTHROID [Concomitant]
     Active Substance: LEVOTHYROXINE SODIUM

REACTIONS (15)
  - Therapeutic response shortened [Not Recovered/Not Resolved]
  - Peripheral coldness [Not Recovered/Not Resolved]
  - Paraesthesia [Not Recovered/Not Resolved]
  - Fall [Recovering/Resolving]
  - Muscular weakness [Not Recovered/Not Resolved]
  - Ulcer haemorrhage [Recovering/Resolving]
  - Loss of consciousness [Recovered/Resolved]
  - Gait disturbance [Not Recovered/Not Resolved]
  - Therapeutic response delayed [Not Recovered/Not Resolved]
  - Paraesthesia oral [Not Recovered/Not Resolved]
  - Diplegia [Recovering/Resolving]
  - Bone disorder [Not Recovered/Not Resolved]
  - Myasthenic syndrome [Not Recovered/Not Resolved]
  - Pelvic fracture [Recovering/Resolving]
  - Drug ineffective [Not Recovered/Not Resolved]

NARRATIVE: CASE EVENT DATE: 2019
